FAERS Safety Report 18799669 (Version 1)
Quarter: 2021Q1

REPORT INFORMATION
  Report Type: Spontaneous
  Country: US (occurrence: US)
  Receive Date: 20210128
  Receipt Date: 20210128
  Transmission Date: 20210419
  Serious: No
  Sender: FDA-Public Use
  Company Number: US-TEVA-2021-US-1870112

PATIENT
  Age: 70 Year
  Sex: Female

DRUGS (2)
  1. NEFAZODONE HYDROCHLORIDE TEVA [Suspect]
     Active Substance: NEFAZODONE HYDROCHLORIDE
     Indication: SLEEP DISORDER
  2. NEFAZODONE HYDROCHLORIDE TEVA [Suspect]
     Active Substance: NEFAZODONE HYDROCHLORIDE
     Indication: ANXIETY
     Dosage: ONE TABLET TWICE DAILY TO JUST HALF A TABLET AT BEDTIME OVER A PERIOD OF ABOUT 6 WEEKS
     Route: 048
     Dates: end: 20210108

REACTIONS (8)
  - Panic attack [Recovered/Resolved]
  - Insomnia [Unknown]
  - Drug ineffective [Unknown]
  - Pruritus [Not Recovered/Not Resolved]
  - Nausea [Not Recovered/Not Resolved]
  - Withdrawal syndrome [Recovering/Resolving]
  - Flushing [Unknown]
  - Headache [Not Recovered/Not Resolved]

NARRATIVE: CASE EVENT DATE: 202101
